FAERS Safety Report 5714173-1 (Version None)
Quarter: 2008Q2

REPORT INFORMATION
  Report Type: 
  Country: None (occurrence: None)
  Receive Date: 20080423
  Receipt Date: 20070706
  Transmission Date: 20081010
  Serious: No
  Sender: FDA-Public Use
  Company Number: US-KINGPHARMUSA00001-K200700859

PATIENT

DRUGS (6)
  1. SKELAXIN [Suspect]
     Indication: PAIN
     Dosage: 400 MG, QHS
     Route: 048
     Dates: start: 20070601, end: 20070706
  2. DOXEPIN                            /00138002/ [Concomitant]
     Dosage: UNK, QHS
  3. SALSALATE [Concomitant]
     Dosage: UNK, QHS
  4. CODEINE W/PARACETAMOL [Concomitant]
     Dosage: UNK, QHS
  5. FLURAZEPAM [Concomitant]
     Dosage: UNK, QHS
  6. FEXOFENADINE [Concomitant]
     Dosage: UNK, QHS

REACTIONS (4)
  - DIARRHOEA [None]
  - FLATULENCE [None]
  - IRRITABILITY [None]
  - NAUSEA [None]
